FAERS Safety Report 9916184 (Version 1)
Quarter: 2014Q1

REPORT INFORMATION
  Report Type: Spontaneous
  Country: US (occurrence: None)
  Receive Date: 20140219
  Receipt Date: 20140219
  Transmission Date: 20141002
  Serious: Yes (Other)
  Sender: FDA-Public Use
  Company Number: UTC-044539

PATIENT
  Age: 1 Year
  Sex: Female
  Weight: 8.72 kg

DRUGS (3)
  1. REMODULIN [Suspect]
     Indication: COR PULMONALE CHRONIC
     Dosage: 57.6 UG/KG (0.04 UG/KG,  1 IN 1 MIN), SUBCUTANEOUS
     Route: 058
     Dates: start: 20140109
  2. TRACLEER (BOSENTAN) (UNKNOWN) [Concomitant]
  3. SILDENAFIL [Concomitant]

REACTIONS (5)
  - Oxygen saturation decreased [None]
  - Infusion site pain [None]
  - Infusion site erythema [None]
  - Device occlusion [None]
  - Crying [None]
